FAERS Safety Report 12785377 (Version 1)
Quarter: 2016Q3

REPORT INFORMATION
  Report Type: Spontaneous
  Country: GB (occurrence: GB)
  Receive Date: 20160927
  Receipt Date: 20160927
  Transmission Date: 20161109
  Serious: Yes (Disabling, Other)
  Sender: FDA-Public Use
  Company Number: GB-MYLANLABS-2016M1040479

PATIENT

DRUGS (12)
  1. NYTOL [Concomitant]
     Active Substance: DIPHENHYDRAMINE HYDROCHLORIDE
     Dosage: UNK
  2. LOSEC                              /00661203/ [Concomitant]
     Dosage: 20 MG, UNK
  3. ELECTROLYTES NOS [Concomitant]
     Active Substance: ELECTROLYTES NOS
     Dosage: UNK
  4. COENZYME Q10 [Concomitant]
     Active Substance: UBIDECARENONE
     Dosage: UNK
  5. ZOPICLONE [Concomitant]
     Active Substance: ZOPICLONE
     Dosage: 3.75 MG, UNK
  6. ALENDRONATE [Suspect]
     Active Substance: ALENDRONATE SODIUM
     Indication: OSTEOPOROSIS PROPHYLAXIS
     Dosage: 70 MG, QW
     Route: 048
     Dates: start: 201509, end: 201512
  7. VITAMIN D                          /00107901/ [Concomitant]
     Active Substance: ERGOCALCIFEROL
     Dosage: WITHDRAWN
  8. CALCIUM [Concomitant]
     Active Substance: CALCIUM
     Dosage: WITHDRAWN
  9. MICRONOR [Concomitant]
     Active Substance: NORETHINDRONE
     Dosage: UNK
  10. RIBOSE [Concomitant]
     Active Substance: DIETARY SUPPLEMENT
     Dosage: UNK
  11. VALERIAN                           /01561601/ [Concomitant]
     Active Substance: VALERIAN
     Dosage: UNK
  12. ALCOHOL. [Concomitant]
     Active Substance: ALCOHOL
     Dosage: UNK

REACTIONS (4)
  - Fatigue [Not Recovered/Not Resolved]
  - Constipation [Unknown]
  - Gastrointestinal disorder [Unknown]
  - Pain in extremity [Not Recovered/Not Resolved]

NARRATIVE: CASE EVENT DATE: 201510
